FAERS Safety Report 16340339 (Version 1)
Quarter: 2019Q2

REPORT INFORMATION
  Report Type: Spontaneous
  Country: US (occurrence: US)
  Receive Date: 20190522
  Receipt Date: 20190522
  Transmission Date: 20190711
  Serious: No
  Sender: FDA-Public Use
  Company Number: US-AMGEN-USASP2019077390

PATIENT
  Age: 88 Year
  Sex: Female

DRUGS (2)
  1. REPATHA [Suspect]
     Active Substance: EVOLOCUMAB
     Dosage: UNK
     Route: 065
  2. REPATHA [Suspect]
     Active Substance: EVOLOCUMAB
     Indication: ARTERIOSCLEROSIS CORONARY ARTERY
     Dosage: 420 MILLIGRAM, QMO
     Route: 065
     Dates: start: 2018

REACTIONS (7)
  - Pruritus generalised [Unknown]
  - Feeding disorder [Unknown]
  - Pain [Unknown]
  - Swollen tongue [Unknown]
  - Oesophagitis [Unknown]
  - Peripheral swelling [Not Recovered/Not Resolved]
  - Swelling [Unknown]
